FAERS Safety Report 8614279-3 (Version None)
Quarter: 2012Q3

REPORT INFORMATION
  Report Type: 
  Country: None (occurrence: None)
  Receive Date: 20120823
  Receipt Date: 20120813
  Transmission Date: 20120928
  Serious: Yes (Death, Life-Threatening, Hospitalization, Other)
  Sender: FDA-Public Use
  Company Number: US-009507513-1208USA006074

PATIENT

DRUGS (1)
  1. INTEGRILIN [Suspect]
     Indication: TROPONIN INCREASED
     Dosage: UNK

REACTIONS (2)
  - HAEMORRHAGE [None]
  - CATHETERISATION CARDIAC [None]
